FAERS Safety Report 8583836-5 (Version None)
Quarter: 2012Q3

REPORT INFORMATION
  Report Type: 
  Country: None (occurrence: None)
  Receive Date: 20120810
  Receipt Date: 20120801
  Transmission Date: 20120928
  Serious: Yes (Disabling, Other)
  Sender: FDA-Public Use
  Company Number: US-009507513-1208USA001893

PATIENT

DRUGS (4)
  1. PEG-INTRON [Suspect]
     Dosage: UNK
     Dates: start: 20080101, end: 20080701
  2. REBETOL [Suspect]
     Indication: HEPATITIS C
     Dosage: UNK
     Dates: start: 20061201, end: 20070801
  3. PEG-INTRON [Suspect]
     Indication: HEPATITIS C
     Dosage: UNK
     Dates: start: 20061201, end: 20070801
  4. REBETOL [Suspect]
     Dosage: UNK
     Dates: start: 20080101, end: 20080701

REACTIONS (11)
  - VIRAL LOAD INCREASED [None]
  - INFECTION [None]
  - HALLUCINATION, VISUAL [None]
  - VOMITING [None]
  - TREATMENT FAILURE [None]
  - PARANOIA [None]
  - POLYNEUROPATHY [None]
  - JOINT STIFFNESS [None]
  - HYPERHIDROSIS [None]
  - CONTUSION [None]
  - DIARRHOEA [None]
